FAERS Safety Report 5696080-6 (Version None)
Quarter: 2008Q2

REPORT INFORMATION
  Report Type: 
  Country: None (occurrence: None)
  Receive Date: 20080407
  Receipt Date: 20080401
  Transmission Date: 20081010
  Serious: Yes (Death)
  Sender: FDA-Public Use
  Company Number: B0514348A

PATIENT
  Age: 36 Year
  Sex: Female
  Weight: 94 kg

DRUGS (5)
  1. LAMICTAL [Suspect]
     Indication: DRUG USE FOR UNKNOWN INDICATION
     Dosage: 350MG PER DAY
     Route: 065
     Dates: start: 20030101
  2. CITALOPRAM HYDROBROMIDE [Suspect]
     Indication: DEPRESSION
     Route: 065
     Dates: start: 20010601, end: 20030101
  3. QUETIAPINE FUMARATE [Concomitant]
     Dosage: 50MG PER DAY
     Dates: start: 20030101
  4. DELEPSINE [Concomitant]
     Dosage: 1000MG PER DAY
     Dates: start: 20030101
  5. MINULET [Concomitant]
     Dates: start: 20030101

REACTIONS (9)
  - CARDIAC ARREST [None]
  - DRUG INTERACTION [None]
  - DRUG TOXICITY [None]
  - ENCEPHALITIS [None]
  - HEART RATE INCREASED [None]
  - MALAISE [None]
  - SINUS TACHYCARDIA [None]
  - SUDDEN DEATH [None]
  - THYROIDITIS [None]
